FAERS Safety Report 5326574-4 (Version None)
Quarter: 2007Q2

REPORT INFORMATION
  Report Type: 
  Country: None (occurrence: None)
  Receive Date: 20070516
  Receipt Date: 20070504
  Transmission Date: 20071010
  Serious: Yes (Other)
  Sender: FDA-Public Use
  Company Number: US-PFIZER INC-2007037710

PATIENT
  Sex: Female
  Weight: 73.2 kg

DRUGS (19)
  1. CHANTIX [Suspect]
     Indication: EX-SMOKER
  2. VYTORIN [Concomitant]
  3. NORVASC [Concomitant]
  4. TEGRETOL [Concomitant]
  5. NIZATIDINE [Concomitant]
  6. MIRTAZAPINE [Concomitant]
  7. METOPROLOL SUCCINATE [Concomitant]
  8. HYDROCHLOROTHIAZIDE [Concomitant]
  9. GEMFIBROZIL [Concomitant]
  10. BUSPIRONE [Concomitant]
  11. OXYCONTIN [Concomitant]
  12. LEVOTHYROXINE SODIUM [Concomitant]
  13. WARFARIN SODIUM [Concomitant]
  14. ACETYLSALICYLIC ACID SRT [Concomitant]
  15. VITAMIN CAP [Concomitant]
  16. OS-CAL [Concomitant]
  17. ASCORBIC ACID [Concomitant]
  18. ADVAIR DISKUS 100/50 [Concomitant]
  19. FLONASE [Concomitant]

REACTIONS (1)
  - DYSURIA [None]
